FAERS Safety Report 12280126 (Version 1)
Quarter: 2016Q2

REPORT INFORMATION
  Report Type: Report from Study
  Country: US (occurrence: US)
  Receive Date: 20160419
  Receipt Date: 20160419
  Transmission Date: 20160815
  Serious: Yes (Other)
  Sender: FDA-Public Use
  Company Number: US-AMGEN-USASL2016047372

PATIENT
  Age: 91 Year
  Sex: Female
  Weight: 51.25 kg

DRUGS (4)
  1. PROLIA [Suspect]
     Active Substance: DENOSUMAB
     Indication: PRODUCT USED FOR UNKNOWN INDICATION
     Dosage: UNK
     Route: 065
  2. VITAMIN B12 [Concomitant]
     Active Substance: CYANOCOBALAMIN
     Dosage: 100 MUG, EVERY MORNING
     Dates: start: 20150202
  3. AMARYL [Concomitant]
     Active Substance: GLIMEPIRIDE
     Dosage: 0.5 UNK, QD
     Route: 048
     Dates: start: 20150410
  4. CARVEDILOL. [Concomitant]
     Active Substance: CARVEDILOL
     Indication: BLOOD PRESSURE MEASUREMENT
     Dosage: 25 MG, Q12H
     Route: 048
     Dates: start: 20151111

REACTIONS (10)
  - Acoustic neuroma [Unknown]
  - Rash [Not Recovered/Not Resolved]
  - Diabetes mellitus [Unknown]
  - Mitral valve incompetence [Unknown]
  - Senile dementia [Unknown]
  - Essential hypertension [Unknown]
  - Neurodermatitis [Unknown]
  - Osteoarthritis [Unknown]
  - Cough [Recovered/Resolved]
  - Aortic valve stenosis [Unknown]
